FAERS Safety Report 7963347-8 (Version None)
Quarter: 2011Q4

REPORT INFORMATION
  Report Type: 
  Country: None (occurrence: None)
  Receive Date: 20111122
  Receipt Date: 20110719
  Transmission Date: 20120403
  Serious: No
  Sender: FDA-Public Use
  Company Number: PHHY2011US66772

PATIENT
  Sex: Female

DRUGS (10)
  1. LYRICA [Concomitant]
  2. VICODIN [Concomitant]
  3. GILENYA [Suspect]
  4. ZYRTEC [Concomitant]
  5. TIZANIDINE HCL [Concomitant]
  6. BACLOFEN [Concomitant]
  7. LAMOTRIGINE [Concomitant]
  8. DILTIAZEM [Concomitant]
  9. IBUPROFEN [Concomitant]
  10. VITAMIN D [Concomitant]

REACTIONS (19)
  - DISTURBANCE IN ATTENTION [None]
  - HYPOAESTHESIA [None]
  - PAIN IN JAW [None]
  - NAUSEA [None]
  - DYSARTHRIA [None]
  - BLOOD PRESSURE INCREASED [None]
  - BALANCE DISORDER [None]
  - CONFUSIONAL STATE [None]
  - PARAESTHESIA ORAL [None]
  - DIZZINESS [None]
  - COUGH [None]
  - SPEECH DISORDER [None]
  - HEADACHE [None]
  - THROAT IRRITATION [None]
  - PAIN IN EXTREMITY [None]
  - MUSCULOSKELETAL STIFFNESS [None]
  - EYE DISORDER [None]
  - CHILLS [None]
  - FATIGUE [None]
